FAERS Safety Report 17700350 (Version 1)
Quarter: 2020Q2

REPORT INFORMATION
  Report Type: Spontaneous
  Country: US (occurrence: US)
  Receive Date: 20200423
  Receipt Date: 20200423
  Transmission Date: 20200714
  Serious: No
  Sender: FDA-Public Use
  Company Number: US-ASTRAZENECA-2020SE52766

PATIENT
  Sex: Female
  Weight: 77.1 kg

DRUGS (12)
  1. DEXILANT [Concomitant]
     Active Substance: DEXLANSOPRAZOLE
     Indication: STEROID THERAPY
  2. ALBUTEROL. [Concomitant]
     Active Substance: ALBUTEROL
  3. ZOMIG [Concomitant]
     Active Substance: ZOLMITRIPTAN
  4. PERFOROMIST [Concomitant]
     Active Substance: FORMOTEROL FUMARATE DIHYDRATE
  5. ALBUTEROL. [Concomitant]
     Active Substance: ALBUTEROL
  6. TOPIRAMATE. [Concomitant]
     Active Substance: TOPIRAMATE
  7. TIZANIDINE. [Concomitant]
     Active Substance: TIZANIDINE
  8. SPIRIVA RESPIMAT [Concomitant]
     Active Substance: TIOTROPIUM BROMIDE
  9. FASENRA [Suspect]
     Active Substance: BENRALIZUMAB
     Indication: ASTHMA
     Dosage: 30.0MG/ML UNKNOWN
     Route: 058
     Dates: start: 20200225
  10. PEPCID XR [Concomitant]
  11. BUDESONIDE. [Concomitant]
     Active Substance: BUDESONIDE
  12. MONTELUKAST [Concomitant]
     Active Substance: MONTELUKAST SODIUM

REACTIONS (3)
  - Pruritus [Unknown]
  - Wheezing [Recovering/Resolving]
  - Cough [Unknown]
